FAERS Safety Report 12012768 (Version 6)
Quarter: 2016Q2

REPORT INFORMATION
  Report Type: Spontaneous
  Country: US (occurrence: US)
  Receive Date: 20160205
  Receipt Date: 20160516
  Transmission Date: 20160815
  Serious: Yes (Other)
  Sender: FDA-Public Use
  Company Number: US-PFIZER INC-2016060705

PATIENT
  Age: 67 Year
  Sex: Female
  Weight: 51 kg

DRUGS (3)
  1. IBRANCE [Suspect]
     Active Substance: PALBOCICLIB
     Dosage: UNK
     Dates: end: 20160503
  2. IBRANCE [Suspect]
     Active Substance: PALBOCICLIB
     Dosage: UNK
  3. IBRANCE [Suspect]
     Active Substance: PALBOCICLIB
     Indication: BREAST CANCER METASTATIC
     Dosage: 100 MG, CYCLIC (DAY 1-21 Q 28 DAY)
     Route: 048
     Dates: start: 20160116

REACTIONS (9)
  - Disease progression [Unknown]
  - Breast cancer metastatic [Unknown]
  - Nail discolouration [Unknown]
  - Gastrooesophageal reflux disease [Not Recovered/Not Resolved]
  - Dyspepsia [Recovered/Resolved]
  - Skin lesion [Unknown]
  - Abdominal discomfort [Unknown]
  - Nail disorder [Unknown]
  - Nail bed disorder [Unknown]

NARRATIVE: CASE EVENT DATE: 2016
